FAERS Safety Report 24590547 (Version 1)
Quarter: 2024Q4

REPORT INFORMATION
  Report Type: Other
  Country: CA (occurrence: CA)
  Receive Date: 20241107
  Receipt Date: 20241107
  Transmission Date: 20250114
  Serious: Yes (Hospitalization, Other)
  Sender: CELLTRION
  Company Number: CA-CELLTRION INC.-2024CA027079

PATIENT

DRUGS (1)
  1. TRASTUZUMAB [Suspect]
     Active Substance: TRASTUZUMAB
     Indication: HER2 positive breast cancer
     Route: 065

REACTIONS (5)
  - Mitral valve incompetence [Not Recovered/Not Resolved]
  - Acute pulmonary oedema [Not Recovered/Not Resolved]
  - Cardiac failure chronic [Not Recovered/Not Resolved]
  - Cardiotoxicity [Not Recovered/Not Resolved]
  - Left ventricular dysfunction [Not Recovered/Not Resolved]
